FAERS Safety Report 22330804 (Version 2)
Quarter: 2023Q2

REPORT INFORMATION
  Report Type: Other
  Country: CA (occurrence: None)
  Receive Date: 20230517
  Receipt Date: 20230529
  Transmission Date: 20230722
  Serious: No
  Sender: FDA-Public Use
  Company Number: CA-ROCHE-3338192

PATIENT
  Sex: Female

DRUGS (2)
  1. OCREVUS [Suspect]
     Active Substance: OCRELIZUMAB
     Indication: Relapsing-remitting multiple sclerosis
     Dosage: HEN 600 MG EVERY 6 MONTH
     Route: 042
     Dates: start: 20220422
  2. NYSTATIN [Concomitant]
     Active Substance: NYSTATIN

REACTIONS (3)
  - Herpes simplex [Not Recovered/Not Resolved]
  - Stomatitis [Recovered/Resolved]
  - Pharyngeal ulceration [Recovered/Resolved]
